FAERS Safety Report 13069911 (Version 1)
Quarter: 2016Q4

REPORT INFORMATION
  Report Type: Spontaneous
  Country: US (occurrence: US)
  Receive Date: 20161228
  Receipt Date: 20161228
  Transmission Date: 20170207
  Serious: No
  Sender: FDA-Public Use
  Company Number: US-PFIZER INC-2016587509

PATIENT
  Age: 73 Year
  Sex: Female
  Weight: 67.1 kg

DRUGS (6)
  1. TOPROL XL [Concomitant]
     Active Substance: METOPROLOL SUCCINATE
     Dosage: 100 MG, 2X/DAY
     Route: 048
  2. FUROSEMIDE. [Concomitant]
     Active Substance: FUROSEMIDE
     Dosage: 20 MG, DAILY
     Route: 048
  3. LUNESTA [Concomitant]
     Active Substance: ESZOPICLONE
     Dosage: 2 MG, AS NEEDED (1 TABLET AT BEDTIME)
     Route: 048
  4. IRBESARTAN. [Concomitant]
     Active Substance: IRBESARTAN
     Dosage: 150 MG, DAILY
     Route: 048
  5. TIKOSYN [Suspect]
     Active Substance: DOFETILIDE
     Indication: ARRHYTHMIA
     Dosage: 0.250 MG, 2X/DAY (EVERY 12 HOURS)
     Route: 048
     Dates: start: 2012
  6. COUMADIN [Concomitant]
     Active Substance: WARFARIN SODIUM
     Dosage: 7.5 MG, UNK (1 1/2 TABS= 7.5 MG SU, M,W,F 1 TAB ALL OTHER DAYS)

REACTIONS (2)
  - Extrasystoles [Unknown]
  - Palpitations [Unknown]
